FAERS Safety Report 5815893-0 (Version None)
Quarter: 2008Q3

REPORT INFORMATION
  Report Type: 
  Country: None (occurrence: None)
  Receive Date: 20080716
  Receipt Date: 20080716
  Transmission Date: 20090109
  Serious: Yes (Hospitalization)
  Sender: FDA-Public Use
  Company Number: None

PATIENT
  Age: 57 Year
  Sex: Male

DRUGS (1)
  1. PEG-INTRON [Suspect]
     Indication: HEPATITIS C
     Dosage: 150 MCG WEEKLY SQ
     Route: 058
     Dates: start: 20080404, end: 20080630

REACTIONS (3)
  - ATRIAL FIBRILLATION [None]
  - FATIGUE [None]
  - INFLUENZA LIKE ILLNESS [None]
